FAERS Safety Report 12736332 (Version 1)
Quarter: 2016Q3

REPORT INFORMATION
  Report Type: Spontaneous
  Country: US (occurrence: US)
  Receive Date: 20160913
  Receipt Date: 20160913
  Transmission Date: 20161109
  Serious: No
  Sender: FDA-Public Use
  Company Number: US-BAYER-2016-177773

PATIENT
  Age: 72 Year
  Sex: Male
  Weight: 72.56 kg

DRUGS (1)
  1. MIRALAX [Suspect]
     Active Substance: POLYETHYLENE GLYCOL 3350
     Dosage: DOSAGE AS USED: 1
     Route: 048
     Dates: start: 2013

REACTIONS (2)
  - Product use issue [None]
  - Expired product administered [None]
